FAERS Safety Report 16696306 (Version 2)
Quarter: 2019Q3

REPORT INFORMATION
  Report Type: Not Available
  Country: FI (occurrence: FI)
  Receive Date: 20190813
  Receipt Date: 20190814
  Transmission Date: 20191004
  Serious: Yes (Other)
  Sender: FDA-Public Use
  Company Number: FI-SYNTHON BV-IN51PV19_49396

PATIENT
  Age: 84 Year
  Sex: Female

DRUGS (7)
  1. THYROXIN [Concomitant]
     Active Substance: LEVOTHYROXINE
     Indication: PRODUCT USED FOR UNKNOWN INDICATION
     Dosage: UNK UNK, UNKNOWN FREQ.
     Route: 065
  2. EXPROS [Suspect]
     Active Substance: TAMSULOSIN HYDROCHLORIDE
     Indication: URINARY INCONTINENCE
     Dosage: 0.4 MG, PROBABLY 1 TABLET DAILY, IRREGULAR USE
     Route: 048
     Dates: start: 2018
  3. EMCONCOR [Concomitant]
     Active Substance: BISOPROLOL FUMARATE
     Indication: PRODUCT USED FOR UNKNOWN INDICATION
     Dosage: UNK UNK, UNKNOWN FREQ.
     Route: 065
  4. WARFARIN [Concomitant]
     Active Substance: WARFARIN
     Indication: PRODUCT USED FOR UNKNOWN INDICATION
     Dosage: UNK UNK, UNKNOWN FREQ.
     Route: 065
  5. CORTISONE [Concomitant]
     Active Substance: CORTISONE
     Indication: PRODUCT USED FOR UNKNOWN INDICATION
     Dosage: UNK UNK, UNKNOWN FREQ.
     Route: 065
  6. SOMAC [Concomitant]
     Active Substance: PANTOPRAZOLE SODIUM
     Indication: PRODUCT USED FOR UNKNOWN INDICATION
     Dosage: UNK UNK, UNKNOWN FREQ.
     Route: 065
  7. FURESIS [Concomitant]
     Active Substance: FUROSEMIDE
     Indication: PRODUCT USED FOR UNKNOWN INDICATION
     Dosage: UNK UNK, UNKNOWN FREQ.
     Route: 065

REACTIONS (12)
  - Vision blurred [Unknown]
  - Rash [Unknown]
  - Headache [Unknown]
  - Palpitations [Unknown]
  - Intraocular pressure increased [Not Recovered/Not Resolved]
  - International normalised ratio abnormal [Unknown]
  - Product use in unapproved indication [Unknown]
  - Eye disorder [Not Recovered/Not Resolved]
  - Off label use [Unknown]
  - Product use issue [Unknown]
  - Haematoma [Unknown]
  - Drug interaction [Unknown]

NARRATIVE: CASE EVENT DATE: 2018
